FAERS Safety Report 25567314 (Version 3)
Quarter: 2025Q3

REPORT INFORMATION
  Report Type: Spontaneous
  Country: US (occurrence: US)
  Receive Date: 20250716
  Receipt Date: 20250822
  Transmission Date: 20251021
  Serious: No
  Sender: PFIZER
  Company Number: US-PFIZER INC-202500053471

PATIENT
  Age: 53 Year
  Sex: Female
  Weight: 97.1 kg

DRUGS (2)
  1. SOMATROPIN [Suspect]
     Active Substance: SOMATROPIN
     Indication: Hypopituitarism
     Dosage: 0.8 MG, DAILY (7 DAYS/WEEK)
  2. SOMATROPIN [Suspect]
     Active Substance: SOMATROPIN
     Indication: Growth hormone deficiency
     Dosage: 0.6 MG, DAILY (7 DAYS/WEEK) UNDER THE SKIN NIGHTLY
     Route: 058
     Dates: start: 20240910

REACTIONS (5)
  - Blood glucose increased [Unknown]
  - Blood bilirubin increased [Unknown]
  - Haemoglobin increased [Unknown]
  - Haematocrit increased [Unknown]
  - Product prescribing error [Unknown]
